FAERS Safety Report 6755112-4 (Version None)
Quarter: 2010Q2

REPORT INFORMATION
  Report Type: 
  Country: None (occurrence: None)
  Receive Date: 20100604
  Receipt Date: 20100525
  Transmission Date: 20101027
  Serious: No
  Sender: FDA-Public Use
  Company Number: US-BIOGENIDEC-2010BI007558

PATIENT
  Age: 44 Year
  Sex: Female
  Weight: 59 kg

DRUGS (4)
  1. TYSABRI [Suspect]
     Indication: MULTIPLE SCLEROSIS
     Route: 042
     Dates: start: 20080325, end: 20090901
  2. TYSABRI [Suspect]
     Route: 042
     Dates: start: 20100401
  3. INSULIN (NOS) [Concomitant]
     Indication: DIABETES MELLITUS
     Dates: start: 19840101
  4. MORPHINE [Concomitant]
     Indication: PAIN

REACTIONS (10)
  - ASTHMA [None]
  - COUGH [None]
  - DRUG HYPERSENSITIVITY [None]
  - DYSPHONIA [None]
  - FALL [None]
  - HYPOAESTHESIA [None]
  - LOSS OF CONTROL OF LEGS [None]
  - SINUSITIS [None]
  - URINARY TRACT INFECTION [None]
  - WHITE BLOOD CELL COUNT INCREASED [None]
